FAERS Safety Report 9372986 (Version 1)
Quarter: 2013Q2

REPORT INFORMATION
  Report Type: Spontaneous
  Country: TR (occurrence: None)
  Receive Date: 20130624
  Receipt Date: 20130624
  Transmission Date: 20140414
  Serious: Yes (Hospitalization)
  Sender: FDA-Public Use
  Company Number: TR-ALKEM-000098

PATIENT
  Age: 20 Year
  Sex: Male

DRUGS (2)
  1. METFORMIN (METFORMIN) [Suspect]
  2. DICLOFENAC SODIUM (DICLOFENAC SODIUM) [Suspect]

REACTIONS (3)
  - Lactic acidosis [None]
  - Nausea [None]
  - Vomiting [None]
